FAERS Safety Report 6084458-0 (Version None)
Quarter: 2009Q1

REPORT INFORMATION
  Report Type: 
  Country: None (occurrence: None)
  Receive Date: 20090219
  Receipt Date: 20090211
  Transmission Date: 20090719
  Serious: Yes (Other)
  Sender: FDA-Public Use
  Company Number: US-PFIZER INC-2009169492

PATIENT
  Sex: Male
  Weight: 88.435 kg

DRUGS (12)
  1. LIPITOR [Suspect]
     Indication: LOW DENSITY LIPOPROTEIN
     Dosage: 25 MG, 1X/DAY
  2. LIPITOR [Suspect]
     Indication: BLOOD CHOLESTEROL
  3. LIPITOR [Suspect]
     Indication: HIGH DENSITY LIPOPROTEIN
  4. ZOCOR [Suspect]
     Indication: BLOOD CHOLESTEROL
  5. STATINS [Suspect]
     Indication: BLOOD CHOLESTEROL
  6. LORAZEPAM [Concomitant]
     Dates: start: 19800101
  7. ZESTRIL [Concomitant]
  8. PEPCID [Concomitant]
  9. ACETYLSALICYLIC ACID [Concomitant]
  10. CENTRUM [Concomitant]
  11. ATACAND [Concomitant]
  12. NEXIUM [Concomitant]

REACTIONS (6)
  - BLOOD CHOLESTEROL ABNORMAL [None]
  - DYSGRAPHIA [None]
  - MYALGIA [None]
  - NERVOUS SYSTEM DISORDER [None]
  - NEUROPATHY PERIPHERAL [None]
  - TREMOR [None]
